FAERS Safety Report 5226812-2 (Version None)
Quarter: 2007Q1

REPORT INFORMATION
  Report Type: 
  Country: None (occurrence: None)
  Receive Date: 20070201
  Receipt Date: 20070123
  Transmission Date: 20070707
  Serious: Yes (Life-Threatening, Hospitalization)
  Sender: FDA-Public Use
  Company Number: ES-ABBOTT-07P-144-0356735-00

PATIENT
  Age: 61 Year
  Sex: Male

DRUGS (6)
  1. KLACID UNIDIA [Suspect]
     Indication: PULMONARY TUBERCULOSIS
     Route: 048
     Dates: start: 20060112
  2. LINEZILID [Suspect]
     Indication: PULMONARY TUBERCULOSIS
     Route: 048
     Dates: start: 20060112, end: 20060608
  3. CLAVULIN [Suspect]
     Indication: PULMONARY TUBERCULOSIS
     Dosage: 875/125MG
     Route: 048
     Dates: start: 20060112
  4. AMILORIDE HCL AND HYDROCHLOROTHIAZIDE [Suspect]
     Indication: DRUG USE FOR UNKNOWN INDICATION
     Dosage: 5/50MG
     Route: 048
     Dates: end: 20060608
  5. ETHAMBUTOL DIHYDROCHLORIDE [Concomitant]
     Indication: PULMONARY TUBERCULOSIS
     Route: 048
     Dates: start: 20060112
  6. MOXIFLOXACIN HCL [Concomitant]
     Indication: PULMONARY TUBERCULOSIS
     Route: 048
     Dates: start: 20060112

REACTIONS (2)
  - ANAEMIA [None]
  - LEUKOPENIA [None]
